FAERS Safety Report 25681154 (Version 1)
Quarter: 2025Q3

REPORT INFORMATION
  Report Type: Spontaneous
  Country: US (occurrence: US)
  Receive Date: 20250814
  Receipt Date: 20250814
  Transmission Date: 20251020
  Serious: No
  Sender: PHARMACOSMOS A/S
  Company Number: US-NEBO-701590

PATIENT

DRUGS (3)
  1. ETOPOSIDE [Concomitant]
     Active Substance: ETOPOSIDE
  2. CARBOPLATIN [Concomitant]
     Active Substance: CARBOPLATIN
  3. COSELA [Suspect]
     Active Substance: TRILACICLIB DIHYDROCHLORIDE
     Indication: Product used for unknown indication

REACTIONS (1)
  - Drug ineffective [Unknown]
